FAERS Safety Report 16412253 (Version 1)
Quarter: 2019Q2

REPORT INFORMATION
  Report Type: Spontaneous
  Country: IT (occurrence: IT)
  Receive Date: 20190610
  Receipt Date: 20190610
  Transmission Date: 20190711
  Serious: Yes (Other)
  Sender: FDA-Public Use
  Company Number: PHHY2019IT130195

PATIENT
  Age: 15 Year
  Sex: Male

DRUGS (4)
  1. PROZIN (CHLORPROMAZINE HYDROCHLORIDE) [Suspect]
     Active Substance: CHLORPROMAZINE HYDROCHLORIDE
     Indication: BEHAVIOUR DISORDER
     Dosage: 1 DF, QD
     Route: 048
     Dates: start: 20160101
  2. VIMPAT [Concomitant]
     Active Substance: LACOSAMIDE
     Indication: PRODUCT USED FOR UNKNOWN INDICATION
     Dosage: 250 MG, QD
     Route: 065
  3. DEPAKIN [Concomitant]
     Active Substance: VALPROATE SODIUM
     Indication: PRODUCT USED FOR UNKNOWN INDICATION
     Dosage: 1 G, QD
     Route: 065
  4. RISPERIDONE. [Suspect]
     Active Substance: RISPERIDONE
     Indication: BEHAVIOUR DISORDER
     Dosage: 2 MG, QD
     Route: 048
     Dates: start: 20160101

REACTIONS (4)
  - Hunger [Recovering/Resolving]
  - Extrapyramidal disorder [Recovering/Resolving]
  - Dystonia [Recovering/Resolving]
  - Salivary hypersecretion [Recovering/Resolving]

NARRATIVE: CASE EVENT DATE: 20160914
